FAERS Safety Report 9170078 (Version 1)
Quarter: 2013Q1

REPORT INFORMATION
  Report Type: Spontaneous
  Country: US (occurrence: None)
  Receive Date: 20130314
  Receipt Date: 20130314
  Transmission Date: 20140127
  Serious: Yes (Other)
  Sender: FDA-Public Use
  Company Number: None

PATIENT
  Age: 67 Year
  Sex: Male
  Weight: 90.72 kg

DRUGS (1)
  1. ZITHROMAX [Suspect]
     Indication: NASOPHARYNGITIS
     Dosage: 2 TABLETS 1ST DAY
     Dates: start: 20121225, end: 20121225

REACTIONS (4)
  - Dizziness [None]
  - Feeling abnormal [None]
  - Dyspnoea [None]
  - Cardiac failure congestive [None]
